FAERS Safety Report 4408077-4 (Version None)
Quarter: 2004Q3

REPORT INFORMATION
  Report Type: 
  Country: None (occurrence: None)
  Receive Date: 20040722
  Receipt Date: 20040709
  Transmission Date: 20050211
  Serious: Yes (Hospitalization)
  Sender: FDA-Public Use
  Company Number: WAES 0407DEU00034

PATIENT
  Age: 69 Year
  Sex: Male

DRUGS (8)
  1. COZAAR [Suspect]
     Indication: CARDIAC FAILURE CONGESTIVE
     Dosage: PO
     Route: 048
     Dates: start: 20030625
  2. ZETIA [Concomitant]
  3. ZOCOR [Concomitant]
  4. BISOPROLOL FUMARATE [Concomitant]
  5. CLOPIDOGREL BISULFATE [Concomitant]
  6. FUROSEMIDE/SPIRONOLACTONE [Concomitant]
  7. METOPROLOL SUCCINATE [Concomitant]
  8. TORSEMIDE [Concomitant]

REACTIONS (6)
  - ABDOMINAL PAIN UPPER [None]
  - ALANINE AMINOTRANSFERASE INCREASED [None]
  - ASPARTATE AMINOTRANSFERASE INCREASED [None]
  - BLOOD ALKALINE PHOSPHATASE ABNORMAL [None]
  - GAMMA-GLUTAMYLTRANSFERASE ABNORMAL [None]
  - RECTAL CANCER [None]
